FAERS Safety Report 25075626 (Version 1)
Quarter: 2025Q1

REPORT INFORMATION
  Report Type: Spontaneous
  Country: FR (occurrence: FR)
  Receive Date: 20250313
  Receipt Date: 20250313
  Transmission Date: 20250409
  Serious: Yes (Other)
  Sender: TEVA
  Company Number: None

PATIENT
  Age: 23 Year
  Sex: Female
  Weight: 86 kg

DRUGS (8)
  1. MICAFUNGIN [Suspect]
     Active Substance: MICAFUNGIN SODIUM
     Indication: Antibiotic prophylaxis
     Dosage: MICAFUNGINE
     Route: 042
     Dates: start: 20250129, end: 20250130
  2. MICAFUNGIN [Suspect]
     Active Substance: MICAFUNGIN SODIUM
     Indication: Antibiotic prophylaxis
     Dosage: MICAFUNGINE
     Route: 042
     Dates: start: 20250117, end: 20250125
  3. LINEZOLID [Concomitant]
     Active Substance: LINEZOLID
     Indication: Antibiotic prophylaxis
     Route: 042
     Dates: start: 20250119, end: 20250121
  4. LINEZOLID [Concomitant]
     Active Substance: LINEZOLID
     Indication: Antibiotic prophylaxis
     Route: 048
     Dates: start: 20250130, end: 20250205
  5. ALIZAPRIDE [Concomitant]
     Active Substance: ALIZAPRIDE
     Indication: Prophylaxis of nausea and vomiting
     Route: 042
     Dates: start: 20250119, end: 20250126
  6. CLINDAMYCIN [Suspect]
     Active Substance: CLINDAMYCIN
     Indication: Staphylococcal infection
     Dosage: CLINDAMYCIN VIATRIS
     Route: 048
     Dates: start: 20250121, end: 20250125
  7. LEVOFLOXACIN [Suspect]
     Active Substance: LEVOFLOXACIN
     Indication: Staphylococcal infection
     Dosage: LEVOFLOXACINE
     Route: 048
     Dates: start: 20250121, end: 20250125
  8. ZOPICLONE [Concomitant]
     Active Substance: ZOPICLONE
     Indication: Product used for unknown indication
     Route: 048
     Dates: start: 20250122, end: 20250128

REACTIONS (1)
  - Rash [Recovered/Resolved]

NARRATIVE: CASE EVENT DATE: 20250125
